FAERS Safety Report 23066228 (Version 1)
Quarter: 2023Q4

REPORT INFORMATION
  Report Type: Spontaneous
  Country: FR (occurrence: FR)
  Receive Date: 20231015
  Receipt Date: 20231015
  Transmission Date: 20240110
  Serious: Yes (Hospitalization)
  Sender: FDA-Public Use
  Company Number: FR-AFSSAPS-PO2023000980

PATIENT
  Age: 16 Year
  Sex: Male
  Weight: 59 kg

DRUGS (1)
  1. ACETAMINOPHEN [Suspect]
     Active Substance: ACETAMINOPHEN
     Indication: Toxicity to various agents
     Dosage: 68 GRAM (1 TOTAL)
     Route: 048
     Dates: start: 20210331, end: 20230331

REACTIONS (3)
  - Blood bilirubin increased [Recovered/Resolved]
  - Hyperlactacidaemia [Recovered/Resolved]
  - Prothrombin time shortened [Recovered/Resolved]

NARRATIVE: CASE EVENT DATE: 20210331
